FAERS Safety Report 6159669-6 (Version None)
Quarter: 2009Q2

REPORT INFORMATION
  Report Type: 
  Country: None (occurrence: None)
  Receive Date: 20090415
  Receipt Date: 20090401
  Transmission Date: 20091009
  Serious: Yes (Other)
  Sender: FDA-Public Use
  Company Number: GB-DEXPHARM-20090403

PATIENT
  Age: 5 Year
  Sex: Female

DRUGS (3)
  1. OMEPRAZOLE [Suspect]
     Indication: GASTROOESOPHAGEAL REFLUX DISEASE
     Dosage: 10 MG MILLGRAM(S), 1 IN 1 DAY ORAL; 20 MG MILLIGRAM(S), ORAL 1 IN 1 DAY
     Route: 048
     Dates: end: 20090209
  2. OMEPRAZOLE [Suspect]
     Indication: GASTROOESOPHAGEAL REFLUX DISEASE
     Dosage: 10 MG MILLGRAM(S), 1 IN 1 DAY ORAL; 20 MG MILLIGRAM(S), ORAL 1 IN 1 DAY
     Route: 048
     Dates: start: 20090210, end: 20090214
  3. GAVISCON INFANT [Concomitant]

REACTIONS (1)
  - COMPLEX PARTIAL SEIZURES [None]
